FAERS Safety Report 8099606-0 (Version None)
Quarter: 2012Q1

REPORT INFORMATION
  Report Type: 
  Country: None (occurrence: None)
  Receive Date: 20120131
  Receipt Date: 20120124
  Transmission Date: 20120608
  Serious: Yes (Hospitalization)
  Sender: FDA-Public Use
  Company Number: PT-PFIZER INC-2012009178

PATIENT
  Age: 65 Year
  Sex: Female

DRUGS (4)
  1. EZETIMIBE/SIMVASTATIN [Concomitant]
     Indication: HYPERCHOLESTEROLAEMIA
  2. SEDOXIL [Concomitant]
     Dosage: UNK
  3. TENORMIN [Concomitant]
     Indication: HYPERTENSION
     Dosage: UNK
  4. FLUCONAZOLE [Suspect]
     Indication: FUNGAL INFECTION
     Dosage: UNK
     Route: 048

REACTIONS (2)
  - CANDIDA SEPSIS [None]
  - DRUG RESISTANCE [None]
